FAERS Safety Report 9502674 (Version 5)
Quarter: 2013Q4

REPORT INFORMATION
  Report Type: Report from Study
  Country: GR (occurrence: GR)
  Receive Date: 20130906
  Receipt Date: 20131108
  Transmission Date: 20140711
  Serious: Yes (Hospitalization)
  Sender: FDA-Public Use
  Company Number: GR-AMGEN-GRCCT2013062240

PATIENT
  Age: 70 Year
  Sex: Male
  Weight: 63 kg

DRUGS (5)
  1. PANITUMUMAB [Suspect]
     Indication: GASTRIC CANCER
     Dosage: 6 MG/KG, Q2WK
     Route: 042
     Dates: start: 20120507
  2. CISPLATIN [Concomitant]
     Indication: GASTRIC CANCER
     Dosage: 40 MG/M2, Q2WK
     Route: 042
     Dates: start: 20120507
  3. 5-FU [Concomitant]
     Indication: GASTRIC CANCER
     Dosage: UNK UNK, Q2WK
     Route: 042
     Dates: start: 20120507
  4. DOCETAXEL [Concomitant]
     Indication: GASTRIC CANCER
     Dosage: 40 MG/M2, Q2WK
     Route: 042
     Dates: start: 20120507
  5. MEDROL [Concomitant]
     Indication: GASTROENTERITIS RADIATION
     Dosage: 24 MG, QD
     Route: 048

REACTIONS (4)
  - Diarrhoea [Recovered/Resolved]
  - Hypokalaemia [Recovered/Resolved]
  - Rash [Not Recovered/Not Resolved]
  - Anaemia [Recovered/Resolved]
